FAERS Safety Report 5619504-9 (Version None)
Quarter: 2008Q1

REPORT INFORMATION
  Report Type: 
  Country: None (occurrence: None)
  Receive Date: 20080111
  Receipt Date: 20070830
  Transmission Date: 20080703
  Serious: Yes (Hospitalization)
  Sender: FDA-Public Use
  Company Number: 07-001797

PATIENT
  Age: 42 Year
  Sex: Female

DRUGS (1)
  1. FEMCON FE [Suspect]
     Dosage: 0.4MG/35 MCG, QD, ORAL
     Route: 048
     Dates: start: 20070101, end: 20070801

REACTIONS (1)
  - PULMONARY EMBOLISM [None]
